FAERS Safety Report 4911185-2 (Version None)
Quarter: 2006Q1

REPORT INFORMATION
  Report Type: 
  Country: None (occurrence: None)
  Receive Date: 20060209
  Receipt Date: 20060123
  Transmission Date: 20060701
  Serious: Yes (Hospitalization)
  Sender: FDA-Public Use
  Company Number: CA200512001551

PATIENT
  Age: 93 Year
  Sex: Male

DRUGS (5)
  1. FORTEO [Suspect]
     Indication: OSTEOPOROSIS
     Dosage: 20 ?G, DAILY (1/D)
     Dates: start: 20050406
  2. FORTEO(FORTEO PEN) [Concomitant]
  3. PEN, DISPOSABLE [Concomitant]
  4. COLACE (DOCUSATE SODIUM) [Concomitant]
  5. CARDIAC THERAPY [Concomitant]

REACTIONS (2)
  - PULMONARY EMBOLISM [None]
  - SHOULDER PAIN [None]
